FAERS Safety Report 7497242-8 (Version None)
Quarter: 2011Q2

REPORT INFORMATION
  Report Type: 
  Country: None (occurrence: None)
  Receive Date: 20110523
  Receipt Date: 20110518
  Transmission Date: 20111010
  Serious: No
  Sender: FDA-Public Use
  Company Number: US-PFIZER INC-2011082679

PATIENT
  Sex: Female
  Weight: 49.887 kg

DRUGS (1)
  1. ADVIL LIQUI-GELS [Suspect]
     Indication: HEADACHE
     Dosage: 200 MG, 1X/DAY
     Route: 048
     Dates: start: 20110408

REACTIONS (2)
  - DRUG INEFFECTIVE [None]
  - ABDOMINAL DISCOMFORT [None]
